FAERS Safety Report 6765781-0 (Version None)
Quarter: 2010Q2

REPORT INFORMATION
  Report Type: 
  Country: None (occurrence: None)
  Receive Date: 20100611
  Receipt Date: 20100602
  Transmission Date: 20101027
  Serious: Yes (Other)
  Sender: FDA-Public Use
  Company Number: US-ROCHE-702513

PATIENT
  Sex: Female
  Weight: 114.8 kg

DRUGS (1)
  1. AVASTIN [Suspect]
     Indication: AUTOIMMUNE DISORDER
     Dosage: START DATE REPORTED AS 1.5 YEARS AGO. FREQUENCY REPORTED AS Q MONTHLY. ROUTE: IVT
     Route: 031
     Dates: start: 20090101

REACTIONS (1)
  - AMENORRHOEA [None]
